FAERS Safety Report 10496265 (Version 4)
Quarter: 2014Q4

REPORT INFORMATION
  Report Type: Spontaneous
  Country: US (occurrence: US)
  Receive Date: 20141003
  Receipt Date: 20141211
  Transmission Date: 20150528
  Serious: Yes (Other)
  Sender: FDA-Public Use
  Company Number: US-ELI_LILLY_AND_COMPANY-US201408008531

PATIENT
  Age: 78 Year
  Sex: Male

DRUGS (3)
  1. HUMULIN 70/30 [Suspect]
     Active Substance: INSULIN HUMAN
     Indication: PRODUCT USED FOR UNKNOWN INDICATION
     Route: 065
  2. HUMULIN N [Suspect]
     Active Substance: INSULIN HUMAN
     Indication: PRODUCT USED FOR UNKNOWN INDICATION
     Dosage: UNK, UNKNOWN
     Route: 065
     Dates: start: 2009
  3. HUMULIN N [Suspect]
     Active Substance: INSULIN HUMAN
     Route: 065

REACTIONS (6)
  - Arthralgia [Unknown]
  - Wrong drug administered [Unknown]
  - Drug ineffective [Unknown]
  - General physical health deterioration [Unknown]
  - Blood glucose increased [Unknown]
  - Glycosylated haemoglobin increased [Unknown]

NARRATIVE: CASE EVENT DATE: 201408
